FAERS Safety Report 10204177 (Version 2)
Quarter: 2014Q2

REPORT INFORMATION
  Report Type: Report from Study
  Country: US (occurrence: US)
  Receive Date: 20140529
  Receipt Date: 20140606
  Transmission Date: 20141212
  Serious: No
  Sender: FDA-Public Use
  Company Number: US-PFIZER INC-2014136529

PATIENT
  Age: 67 Year
  Sex: Male
  Weight: 95.8 kg

DRUGS (4)
  1. TOFACITINIB CITRATE [Suspect]
     Indication: COLITIS ULCERATIVE
     Dosage: 10 MG, 2X/DAY
     Route: 048
     Dates: start: 20140417
  2. FEOSOL [Concomitant]
     Dosage: UNK, 2X/DAY
     Route: 048
     Dates: start: 20131121
  3. CRESTOR [Concomitant]
     Dosage: 10 MG, EVERY OTHER DAY
     Route: 048
     Dates: start: 201209
  4. PRILOSEC [Concomitant]
     Dosage: UNK, 1X/DAY
     Route: 048

REACTIONS (1)
  - Rash pustular [Not Recovered/Not Resolved]
